FAERS Safety Report 8464423-6 (Version None)
Quarter: 2012Q2

REPORT INFORMATION
  Report Type: 
  Country: None (occurrence: None)
  Receive Date: 20120626
  Receipt Date: 20111122
  Transmission Date: 20120825
  Serious: No
  Sender: FDA-Public Use
  Company Number: US-BIOGENIDEC-2011BI044616

PATIENT
  Sex: Male

DRUGS (2)
  1. AVONEX [Suspect]
     Indication: MULTIPLE SCLEROSIS
     Route: 030
  2. AVONEX [Suspect]
     Route: 030
     Dates: start: 20070223

REACTIONS (7)
  - GAIT DISTURBANCE [None]
  - CHILLS [None]
  - HEADACHE [None]
  - FATIGUE [None]
  - TREMOR [None]
  - ASTHENIA [None]
  - DEPRESSION [None]
